FAERS Safety Report 8689425 (Version 2)
Quarter: 2012Q4

REPORT INFORMATION
  Report Type: 
  Country: US (occurrence: US)
  Receive Date: 20120727
  Receipt Date: 20121112
  Transmission Date: 20130627
  Serious: No
  Sender: FDA-Public Use
  Company Number: US-ASTRAZENECA-2012SE02305

PATIENT
  Age: 38 Year
  Sex: Female
  Weight: 77.1 kg

DRUGS (6)
  1. SEROQUEL XR [Suspect]
     Indication: SLEEP DISORDER
     Route: 048
  2. SEROQUEL XR [Suspect]
     Indication: BIPOLAR DISORDER
     Route: 048
  3. CYMBALTA [Concomitant]
     Indication: DEPRESSION
  4. LYRICA [Concomitant]
     Indication: FIBROMYALGIA
  5. TRAZADONE [Concomitant]
     Indication: SLEEP DISORDER
  6. XANAX [Concomitant]
     Indication: ANXIETY

REACTIONS (3)
  - Insomnia [Unknown]
  - Weight increased [Unknown]
  - Drug dose omission [Unknown]
